FAERS Safety Report 15707692 (Version 1)
Quarter: 2018Q4

REPORT INFORMATION
  Report Type: Spontaneous
  Country: US (occurrence: US)
  Receive Date: 20181127
  Receipt Date: 20181127
  Transmission Date: 20190205
  Serious: No
  Sender: FDA-Public Use
  Company Number: None

PATIENT
  Age: 77 Year
  Weight: 51.71 kg

DRUGS (10)
  1. LEVOTHYROZINE [Concomitant]
  2. MIRTAZAPINE. [Concomitant]
     Active Substance: MIRTAZAPINE
  3. HYDROCODONE [Concomitant]
     Active Substance: HYDROCODONE
  4. KEYTRUDA [Suspect]
     Active Substance: PEMBROLIZUMAB
     Indication: THROAT CANCER
     Dosage: ?          OTHER ROUTE:INJECTION?
     Dates: start: 20170926, end: 20180503
  5. INSULIN [Concomitant]
     Active Substance: INSULIN NOS
  6. KEYTRUDA [Suspect]
     Active Substance: PEMBROLIZUMAB
     Indication: TONGUE NEOPLASM MALIGNANT STAGE UNSPECIFIED
     Dosage: ?          OTHER ROUTE:INJECTION?
     Dates: start: 20170926, end: 20180503
  7. GLIMEPIRIDE. [Concomitant]
     Active Substance: GLIMEPIRIDE
  8. KEYTRUDA [Suspect]
     Active Substance: PEMBROLIZUMAB
     Indication: TONSIL CANCER
     Dosage: ?          OTHER ROUTE:INJECTION?
     Dates: start: 20170926, end: 20180503
  9. LISINOPRIL. [Concomitant]
     Active Substance: LISINOPRIL
  10. ALEVE [Concomitant]
     Active Substance: NAPROXEN SODIUM

REACTIONS (2)
  - Diabetes mellitus [None]
  - Thyroid disorder [None]

NARRATIVE: CASE EVENT DATE: 20180503
